FAERS Safety Report 25411243 (Version 2)
Quarter: 2025Q2

REPORT INFORMATION
  Report Type: Spontaneous
  Country: US (occurrence: US)
  Receive Date: 20250609
  Receipt Date: 20250627
  Transmission Date: 20250717
  Serious: Yes (Other)
  Sender: SANOFI AVENTIS
  Company Number: US-SA-2025SA161072

PATIENT
  Age: 85 Year
  Sex: Female

DRUGS (7)
  1. DUPIXENT [Suspect]
     Active Substance: DUPILUMAB
     Indication: Bronchiectasis
     Dosage: 300 MG, QOW
     Route: 058
     Dates: start: 20250613
  2. DUPIXENT [Suspect]
     Active Substance: DUPILUMAB
     Dosage: 600MG, QOW
     Route: 058
  3. SINGULAIR [Concomitant]
     Active Substance: MONTELUKAST SODIUM
  4. SPIRIVA [Concomitant]
     Active Substance: TIOTROPIUM BROMIDE MONOHYDRATE
  5. TRAZODONE HCL [Concomitant]
     Active Substance: TRAZODONE HYDROCHLORIDE
  6. TYLENOL [Concomitant]
     Active Substance: ACETAMINOPHEN
  7. ALLEGRA ALLERGY [Concomitant]
     Active Substance: FEXOFENADINE HYDROCHLORIDE

REACTIONS (6)
  - Pneumonia bacterial [Not Recovered/Not Resolved]
  - Hypoacusis [Not Recovered/Not Resolved]
  - Respiratory fume inhalation disorder [Not Recovered/Not Resolved]
  - Injection site pain [Not Recovered/Not Resolved]
  - Product use in unapproved indication [Unknown]
  - Overdose [Unknown]

NARRATIVE: CASE EVENT DATE: 20250613
